FAERS Safety Report 4682861-4 (Version None)
Quarter: 2005Q2

REPORT INFORMATION
  Report Type: 
  Country: None (occurrence: None)
  Receive Date: 20050606
  Receipt Date: 20050513
  Transmission Date: 20051028
  Serious: Yes (Hospitalization)
  Sender: FDA-Public Use
  Company Number: SK-BRISTOL-MYERS SQUIBB COMPANY-12967873

PATIENT
  Age: 67 Year
  Sex: Female

DRUGS (3)
  1. PACLITAXEL [Suspect]
     Indication: BREAST CANCER METASTATIC
     Route: 042
     Dates: start: 20041223, end: 20041223
  2. PLACEBO [Suspect]
     Indication: BREAST CANCER METASTATIC
     Route: 048
     Dates: start: 20041022, end: 20050131
  3. PANCREATIN [Concomitant]

REACTIONS (1)
  - HEPATOTOXICITY [None]
